FAERS Safety Report 5352517-3 (Version None)
Quarter: 2007Q2

REPORT INFORMATION
  Report Type: 
  Country: None (occurrence: None)
  Receive Date: 20070518
  Receipt Date: 20060919
  Transmission Date: 20071010
  Serious: Yes (Hospitalization)
  Sender: FDA-Public Use
  Company Number: US-2006-028222

PATIENT
  Age: 52 Year
  Sex: Male
  Weight: 107 kg

DRUGS (13)
  1. QUADRAMET [Suspect]
     Indication: PROSTATE CANCER METASTATIC
     Dosage: 1.25 MCI/KG, 1 DOSE, INTRAVENOUS
     Route: 042
     Dates: start: 20060727, end: 20060727
  2. ZOLEDRONIC ACID [Suspect]
     Indication: PROSTATE CANCER METASTATIC
     Dosage: 4 MG, 1 DOSE, INTRAVENOUS, 4 MG, 1 DOSE, INTRAVENOUS
     Route: 042
     Dates: start: 20060727, end: 20060727
  3. ZOLEDRONIC ACID [Suspect]
     Indication: PROSTATE CANCER METASTATIC
     Dosage: 4 MG, 1 DOSE, INTRAVENOUS, 4 MG, 1 DOSE, INTRAVENOUS
     Route: 042
     Dates: start: 20060822, end: 20060822
  4. MS CONTIN [Concomitant]
  5. HYDROCODONE W/APAP (HYDROCODONE) [Concomitant]
  6. PROMETHAZINE [Concomitant]
  7. MULTIVITAMINS (RETINOL, PANTHENOL) [Concomitant]
  8. IBUPROFEN [Concomitant]
  9. KADIAN [Concomitant]
  10. COMPAZINE (PROCHLORPPERAZINE EDISYLATE) [Concomitant]
  11. HYDROMORPHONE HCL [Concomitant]
  12. LUPRON [Concomitant]
  13. DILAUDID [Concomitant]

REACTIONS (2)
  - MUSCULOSKELETAL PAIN [None]
  - PAIN IN EXTREMITY [None]
